FAERS Safety Report 8190676-8 (Version None)
Quarter: 2012Q1

REPORT INFORMATION
  Report Type: 
  Country: None (occurrence: None)
  Receive Date: 20120307
  Receipt Date: 20120229
  Transmission Date: 20120608
  Serious: Yes (Death, Other)
  Sender: FDA-Public Use
  Company Number: CA-UCBSA-044079

PATIENT
  Age: 65 Year
  Sex: Female
  Weight: 75 kg

DRUGS (11)
  1. METHOTREXATE [Concomitant]
     Indication: RHEUMATOID ARTHRITIS
     Route: 048
     Dates: start: 20070101
  2. SULFASALAZINE [Concomitant]
     Indication: RHEUMATOID ARTHRITIS
     Route: 048
     Dates: start: 20090101
  3. AVAPRO [Concomitant]
     Indication: HYPERTENSION
     Route: 048
  4. PAXIL [Concomitant]
  5. PLAVIX [Concomitant]
  6. CIMZIA [Suspect]
     Indication: RHEUMATOID ARTHRITIS
     Route: 058
     Dates: start: 20100517, end: 20100614
  7. CRESTOR [Concomitant]
  8. CIMZIA [Suspect]
     Route: 058
     Dates: start: 20100628, end: 20111001
  9. FOLIC ACID [Concomitant]
     Indication: VITAMIN SUPPLEMENTATION
     Route: 048
     Dates: start: 20070101
  10. DICLOFENAC SR [Concomitant]
     Indication: ANTIINFLAMMATORY THERAPY
     Route: 048
  11. PRILOSEC [Concomitant]

REACTIONS (3)
  - DIARRHOEA [None]
  - VOMITING [None]
  - BILE DUCT CANCER [None]
